FAERS Safety Report 9758139 (Version 1)
Quarter: 2013Q4

REPORT INFORMATION
  Report Type: Spontaneous
  Country: JP (occurrence: JP)
  Receive Date: 20131216
  Receipt Date: 20131216
  Transmission Date: 20140711
  Serious: Yes (Hospitalization)
  Sender: FDA-Public Use
  Company Number: JP-ROCHE-1315651

PATIENT
  Age: 90 Year
  Sex: 0

DRUGS (2)
  1. MIRCERA [Suspect]
     Indication: RENAL FAILURE CHRONIC
     Route: 058
  2. TOLVAPTAN [Suspect]
     Indication: PRODUCT USED FOR UNKNOWN INDICATION
     Dosage: DOSAGE IS UNCERTAIN.
     Route: 065

REACTIONS (1)
  - Renal failure [Unknown]
